FAERS Safety Report 6470378-6 (Version None)
Quarter: 2009Q4

REPORT INFORMATION
  Report Type: 
  Country: None (occurrence: None)
  Receive Date: 20091203
  Receipt Date: 20091123
  Transmission Date: 20100525
  Serious: Yes (Death, Hospitalization, Other)
  Sender: FDA-Public Use
  Company Number: US-PFIZER INC-2009254643

PATIENT
  Sex: Male

DRUGS (1)
  1. SUTENT [Suspect]
     Indication: METASTATIC RENAL CELL CARCINOMA
     Dosage: 50 MG, 1X/DAY 28DAYS EVERY 42 DAYS
     Dates: start: 20090115, end: 20090823

REACTIONS (5)
  - ANAEMIA [None]
  - CHOLECYSTITIS ACUTE [None]
  - DEATH [None]
  - EROSIVE OESOPHAGITIS [None]
  - INCORRECT DOSE ADMINISTERED [None]
